FAERS Safety Report 16350700 (Version 1)
Quarter: 2019Q2

REPORT INFORMATION
  Report Type: Spontaneous
  Country: US (occurrence: US)
  Receive Date: 20190524
  Receipt Date: 20190524
  Transmission Date: 20190711
  Serious: No
  Sender: FDA-Public Use
  Company Number: US-ACCORD-066470

PATIENT
  Age: 73 Year
  Sex: Male
  Weight: 92.99 kg

DRUGS (12)
  1. POTASSIUM [Concomitant]
     Active Substance: POTASSIUM
  2. HYDRALAZINE [Concomitant]
     Active Substance: HYDRALAZINE HYDROCHLORIDE
  3. ACETYLSALICYLIC ACID [Concomitant]
     Active Substance: ASPIRIN
  4. ROPINIROLE/ROPINIROLE HYDROCHLORIDE [Concomitant]
  5. HYDROCHLOROTHIAZIDE/LOSARTAN POTASSIUM [Concomitant]
     Dosage: 100/12.5 MG QD
  6. TRADJENTA [Concomitant]
     Active Substance: LINAGLIPTIN
  7. SIMVASTATIN. [Concomitant]
     Active Substance: SIMVASTATIN
  8. CLOPIDOGREL [Suspect]
     Active Substance: CLOPIDOGREL BISULFATE
     Indication: CEREBROVASCULAR ACCIDENT
     Dosage: STRENGTH: 75 MG
     Route: 048
     Dates: start: 2007
  9. METOPROLOL. [Concomitant]
     Active Substance: METOPROLOL
  10. OXYCODONE/PARACETAMOL [Concomitant]
     Dosage: 5/325 MG PRN
  11. METFORMIN [Concomitant]
     Active Substance: METFORMIN HYDROCHLORIDE
  12. GLIMEPIRIDE. [Concomitant]
     Active Substance: GLIMEPIRIDE

REACTIONS (1)
  - Epistaxis [Unknown]

NARRATIVE: CASE EVENT DATE: 20171202
